FAERS Safety Report 7319886-6 (Version None)
Quarter: 2011Q1

REPORT INFORMATION
  Report Type: 
  Country: None (occurrence: None)
  Receive Date: 20110228
  Receipt Date: 20101115
  Transmission Date: 20110831
  Serious: Yes (Other)
  Sender: FDA-Public Use
  Company Number: A0892545A

PATIENT
  Sex: Female

DRUGS (1)
  1. LAMICTAL [Suspect]
     Route: 048

REACTIONS (4)
  - RASH [None]
  - BLISTER [None]
  - PRURITUS [None]
  - STEVENS-JOHNSON SYNDROME [None]
